FAERS Safety Report 26019700 (Version 1)
Quarter: 2025Q4

REPORT INFORMATION
  Report Type: Spontaneous
  Country: US (occurrence: None)
  Receive Date: 20251108
  Receipt Date: 20251108
  Transmission Date: 20260117
  Serious: Yes (Life-Threatening, Disabling)
  Sender: FDA-CTU
  Company Number: None

PATIENT
  Age: 40 Year
  Sex: Male
  Weight: 95.85 kg

DRUGS (12)
  1. .DELTA.9-TETRAHYDROCANNABINOL\CANNABIDIOL\HERBALS [Suspect]
     Active Substance: .DELTA.9-TETRAHYDROCANNABINOL\CANNABIDIOL\HERBALS
     Indication: Substance use
     Dosage: OTHER QUANTITY : 1 GRAM;?OTHER FREQUENCY : 4-8 TIMES A DAY;?
     Route: 055
     Dates: start: 20150907, end: 20251104
  2. .DELTA.9-TETRAHYDROCANNABINOL\CANNABIDIOL\HERBALS [Suspect]
     Active Substance: .DELTA.9-TETRAHYDROCANNABINOL\CANNABIDIOL\HERBALS
     Indication: Substance use
  3. .DELTA.9-TETRAHYDROCANNABINOL\HERBALS [Suspect]
     Active Substance: .DELTA.9-TETRAHYDROCANNABINOL\HERBALS
     Indication: Substance use
     Dosage: OTHER FREQUENCY : 4-8 TIMES A DAY;?
     Route: 055
     Dates: start: 20250902, end: 20251104
  4. .DELTA.9-TETRAHYDROCANNABINOL\HERBALS [Suspect]
     Active Substance: .DELTA.9-TETRAHYDROCANNABINOL\HERBALS
     Indication: Sleep disorder
  5. 500mg Ashwaghanda(capsules or gummies) [Concomitant]
  6. men^s multivitamins from Nutra Champs(gummies) [Concomitant]
  7. Magnesium(capsule) [Concomitant]
  8. L-Theanine(capsule) [Concomitant]
  9. activated charcoal (capsule) [Concomitant]
  10. activated charcoal (capsule) [Concomitant]
  11. homemade salty lemonade mixture [Concomitant]
  12. high protein diet [Concomitant]

REACTIONS (13)
  - Vertigo [None]
  - Nausea [None]
  - Headache [None]
  - Pyrexia [None]
  - Muscle spasms [None]
  - Abdominal pain [None]
  - Diarrhoea [None]
  - Asthenia [None]
  - Cold sweat [None]
  - Feeling hot [None]
  - Product contamination chemical [None]
  - Product tampering [None]
  - Product advertising issue [None]

NARRATIVE: CASE EVENT DATE: 20251104
